FAERS Safety Report 10191913 (Version 1)
Quarter: 2014Q2

REPORT INFORMATION
  Report Type: Spontaneous
  Country: NL (occurrence: NL)
  Receive Date: 20140523
  Receipt Date: 20140523
  Transmission Date: 20141212
  Serious: Yes (Hospitalization)
  Sender: FDA-Public Use
  Company Number: NL-GLAXOSMITHKLINE-B0996254A

PATIENT
  Age: 67 Year
  Sex: Male
  Weight: 74 kg

DRUGS (4)
  1. RYTMONORM [Suspect]
     Indication: ATRIAL FIBRILLATION
     Dosage: 150MG TWICE PER DAY
     Route: 048
     Dates: start: 20131015, end: 20131127
  2. SYMBICORT TURBUHALER [Concomitant]
     Route: 055
     Dates: start: 2007
  3. PANTOPRAZOL [Concomitant]
     Route: 048
     Dates: start: 2009
  4. PARACETAMOL [Concomitant]
     Indication: INFLUENZA
     Route: 065

REACTIONS (2)
  - Hepatic function abnormal [Recovered/Resolved]
  - Abdominal pain [Recovered/Resolved]
